FAERS Safety Report 6750281-4 (Version None)
Quarter: 2010Q2

REPORT INFORMATION
  Report Type: 
  Country: None (occurrence: None)
  Receive Date: 20100601
  Receipt Date: 20100521
  Transmission Date: 20101027
  Serious: Yes (Other)
  Sender: FDA-Public Use
  Company Number: JP-PFIZER INC-2010065956

PATIENT
  Sex: Female

DRUGS (1)
  1. ZITHROMAC SR [Suspect]
     Indication: STOMATITIS
     Dosage: 2 G, SINGLE
     Route: 048

REACTIONS (2)
  - DIARRHOEA [None]
  - HAEMORRHAGE SUBCUTANEOUS [None]
